FAERS Safety Report 8766389 (Version 3)
Quarter: 2013Q1

REPORT INFORMATION
  Report Type: Spontaneous
  Country: US (occurrence: US)
  Receive Date: 20120904
  Receipt Date: 20130305
  Transmission Date: 20140127
  Serious: Yes (Death, Hospitalization, Other)
  Sender: FDA-Public Use
  Company Number: US-009507513-1208USA012305

PATIENT
  Age: 34 Year
  Sex: Male

DRUGS (3)
  1. ISENTRESS [Suspect]
     Indication: HIV INFECTION
     Dosage: 400 MG, BID
     Route: 048
     Dates: start: 201106
  2. ATRIPLA [Concomitant]
     Route: 048
  3. MEPRON (ATOVAQUONE) [Concomitant]

REACTIONS (9)
  - Death [Fatal]
  - Kaposi^s sarcoma [Unknown]
  - Pneumonia [Unknown]
  - Respiratory disorder [Unknown]
  - Wheezing [Unknown]
  - Cough [Unknown]
  - Haemoptysis [Unknown]
  - Dyspnoea [Unknown]
  - Drug dose omission [Unknown]
